FAERS Safety Report 8329695-7 (Version None)
Quarter: 2012Q2

REPORT INFORMATION
  Report Type: 
  Country: None (occurrence: None)
  Receive Date: 20120502
  Receipt Date: 20120430
  Transmission Date: 20120825
  Serious: Yes (Hospitalization)
  Sender: FDA-Public Use
  Company Number: KR-GLAXOSMITHKLINE-B0712590A

PATIENT
  Sex: Female
  Weight: 56 kg

DRUGS (6)
  1. XELODA [Suspect]
     Indication: NEOPLASM MALIGNANT
     Dosage: 3000MG PER DAY
     Route: 048
     Dates: start: 20110308, end: 20110425
  2. OXYCODONE HCL [Concomitant]
     Indication: PAIN
     Dosage: 10MG PER DAY
     Dates: start: 20110308
  3. METFORMIN HCL [Concomitant]
     Indication: DIABETES MELLITUS
     Dates: start: 20110411
  4. ACETAMINOPHEN [Concomitant]
     Indication: PAIN
     Dosage: 60MG PER DAY
     Dates: start: 20110308, end: 20110403
  5. TYKERB [Suspect]
     Indication: NEOPLASM MALIGNANT
     Dosage: 1250MG PER DAY
     Route: 048
     Dates: start: 20110308, end: 20110430
  6. RADIATION [Concomitant]
     Indication: METASTASES TO CENTRAL NERVOUS SYSTEM

REACTIONS (2)
  - DIARRHOEA [None]
  - HYPOPHAGIA [None]
